FAERS Safety Report 12573187 (Version 1)
Quarter: 2016Q3

REPORT INFORMATION
  Report Type: Spontaneous
  Country: US (occurrence: None)
  Receive Date: 20160719
  Receipt Date: 20160719
  Transmission Date: 20161109
  Serious: Yes (Other)
  Sender: FDA-Public Use
  Company Number: None

PATIENT
  Age: 39 Year
  Sex: Female
  Weight: 102.97 kg

DRUGS (2)
  1. NALOXONE [Concomitant]
     Active Substance: NALOXONE
  2. SUBUTEX [Suspect]
     Active Substance: BUPRENORPHINE HYDROCHLORIDE

REACTIONS (2)
  - Swelling [None]
  - Erythema [None]

NARRATIVE: CASE EVENT DATE: 20130401
